FAERS Safety Report 5792542-1 (Version None)
Quarter: 2008Q2

REPORT INFORMATION
  Report Type: 
  Country: None (occurrence: None)
  Receive Date: 20080626
  Receipt Date: 20080617
  Transmission Date: 20081010
  Serious: Yes (Hospitalization)
  Sender: FDA-Public Use
  Company Number: ES-PFIZER INC-2008031556

PATIENT
  Age: 44 Year
  Sex: Female

DRUGS (2)
  1. ALDACTONE [Suspect]
     Indication: OEDEMA
     Route: 048
     Dates: start: 20070812, end: 20070816
  2. FUROSEMIDE [Interacting]
     Indication: OEDEMA
     Route: 048
     Dates: start: 20070717, end: 20070816

REACTIONS (3)
  - DRUG INTERACTION [None]
  - HEPATIC ENCEPHALOPATHY [None]
  - RENAL FAILURE ACUTE [None]
